FAERS Safety Report 22829016 (Version 2)
Quarter: 2023Q4

REPORT INFORMATION
  Report Type: Other
  Country: AU (occurrence: AU)
  Receive Date: 20230816
  Receipt Date: 20231206
  Transmission Date: 20240109
  Serious: Yes (Hospitalization, Other)
  Sender: FDA-Public Use
  Company Number: AU-Osmotica_Pharmaceutical_US_LLC-POI0573202300177

PATIENT
  Age: 49 Year
  Sex: Female

DRUGS (3)
  1. DIVIGEL [Suspect]
     Active Substance: ESTRADIOL
     Indication: Menopause
     Route: 062
     Dates: start: 20230330
  2. PROMETRIUM [Suspect]
     Active Substance: PROGESTERONE
     Indication: Menopause
     Dosage: 100 MG,2 WK
     Route: 067
     Dates: start: 20230413
  3. PROMETRIUM [Suspect]
     Active Substance: PROGESTERONE
     Dosage: 2ND CYCLE
     Route: 067
     Dates: start: 20230524

REACTIONS (7)
  - Atrial fibrillation [Not Recovered/Not Resolved]
  - Arrhythmia [Not Recovered/Not Resolved]
  - Tachycardia [Not Recovered/Not Resolved]
  - Hypertension [Not Recovered/Not Resolved]
  - Dizziness [Not Recovered/Not Resolved]
  - Anxiety [Not Recovered/Not Resolved]
  - Product use issue [Not Recovered/Not Resolved]

NARRATIVE: CASE EVENT DATE: 20230413
